FAERS Safety Report 10596651 (Version 1)
Quarter: 2014Q4

REPORT INFORMATION
  Report Type: Spontaneous
  Country: US (occurrence: US)
  Receive Date: 20141120
  Receipt Date: 20141120
  Transmission Date: 20150529
  Serious: Yes (Other)
  Sender: FDA-Public Use
  Company Number: US-ELI_LILLY_AND_COMPANY-US201411004711

PATIENT
  Age: 71 Year
  Sex: Male

DRUGS (1)
  1. EFFIENT [Suspect]
     Active Substance: PRASUGREL HYDROCHLORIDE
     Indication: ACUTE MYOCARDIAL INFARCTION
     Dosage: 60 MG, SINGLE
     Route: 048
     Dates: start: 20141011, end: 20141110

REACTIONS (2)
  - Myocardial infarction [Unknown]
  - Thrombosis in device [Recovered/Resolved]

NARRATIVE: CASE EVENT DATE: 20141110
